FAERS Safety Report 4894981-X (Version None)
Quarter: 2006Q1

REPORT INFORMATION
  Report Type: 
  Country: None (occurrence: None)
  Receive Date: 20060130
  Receipt Date: 20050623
  Transmission Date: 20060701
  Serious: No
  Sender: FDA-Public Use
  Company Number: US-BRISTOL-MYERS SQUIBB COMPANY-13018932

PATIENT
  Age: 66 Year
  Sex: Male

DRUGS (8)
  1. METFORMIN HCL [Suspect]
     Indication: DIABETES MELLITUS NON-INSULIN-DEPENDENT
     Dates: start: 20020701
  2. LEVOTHYROXINE SODIUM [Concomitant]
     Indication: THYROIDECTOMY
  3. ASPIRIN [Concomitant]
  4. LISINOPRIL [Concomitant]
  5. SIMVASTATIN [Concomitant]
  6. AMLODIPINE [Concomitant]
  7. DILTIAZEM HCL [Concomitant]
  8. GLIPIZIDE [Concomitant]

REACTIONS (3)
  - BLOOD THYROID STIMULATING HORMONE DECREASED [None]
  - THYROXINE FREE DECREASED [None]
  - WEIGHT DECREASED [None]
